FAERS Safety Report 7084340-6 (Version None)
Quarter: 2010Q4

REPORT INFORMATION
  Report Type: 
  Country: None (occurrence: None)
  Receive Date: 20101104
  Receipt Date: 20101025
  Transmission Date: 20110411
  Serious: Yes (Other)
  Sender: FDA-Public Use
  Company Number: US-PFIZER INC-2010135735

PATIENT
  Sex: Female

DRUGS (3)
  1. LYRICA [Suspect]
     Indication: FIBROMYALGIA
     Dosage: 25 MG, UNK
     Route: 048
  2. LYRICA [Suspect]
     Dosage: 50 MG, UNK
     Route: 048
  3. LYRICA [Suspect]
     Dosage: 100 MG, UNK
     Route: 048

REACTIONS (5)
  - GINGIVAL PAIN [None]
  - OROPHARYNGEAL PLAQUE [None]
  - SOMNOLENCE [None]
  - STOMATITIS [None]
  - SWOLLEN TONGUE [None]
